FAERS Safety Report 6081675-0 (Version None)
Quarter: 2009Q1

REPORT INFORMATION
  Report Type: 
  Country: None (occurrence: None)
  Receive Date: 20090213
  Receipt Date: 20090203
  Transmission Date: 20090719
  Serious: No
  Sender: FDA-Public Use
  Company Number: 2008-178744-NL

PATIENT
  Age: 25 Year
  Sex: Female

DRUGS (2)
  1. ETONOGESTREL [Suspect]
     Indication: CONTRACEPTION
     Dosage: DF
     Route: 059
     Dates: start: 20051215, end: 20081209
  2. ETONOGESTREL [Suspect]
     Indication: CONTRACEPTION
     Dosage: DF
     Route: 059
     Dates: start: 20081209, end: 20081211

REACTIONS (3)
  - INJECTION SITE ECZEMA [None]
  - INJECTION SITE PRURITUS [None]
  - OEDEMA PERIPHERAL [None]
